FAERS Safety Report 19099874 (Version 1)
Quarter: 2021Q2

REPORT INFORMATION
  Report Type: Other
  Country: CA (occurrence: CA)
  Receive Date: 20210406
  Receipt Date: 20210406
  Transmission Date: 20210717
  Serious: Yes (Other)
  Sender: FDA-Public Use
  Company Number: CA-APOTEX-2021AP007684

PATIENT

DRUGS (7)
  1. METHOTREXATE. [Suspect]
     Active Substance: METHOTREXATE
     Indication: BLAU SYNDROME
     Dosage: UNK
     Route: 065
  2. HUMIRA [Suspect]
     Active Substance: ADALIMUMAB
     Indication: BLAU SYNDROME
     Dosage: UNK
     Route: 065
  3. LEFLUNOMIDE. [Suspect]
     Active Substance: LEFLUNOMIDE
     Indication: BLAU SYNDROME
     Dosage: UNK
     Route: 065
  4. MYOCHRYSINE [Suspect]
     Active Substance: GOLD SODIUM THIOMALATE
     Indication: BLAU SYNDROME
     Dosage: UNK
     Route: 065
  5. ARALEN [CHLOROQUINE HYDROCHLORIDE] [Suspect]
     Active Substance: CHLOROQUINE HYDROCHLORIDE
     Indication: BLAU SYNDROME
     Dosage: UNK
     Route: 065
  6. PLAQUENIL [Suspect]
     Active Substance: HYDROXYCHLOROQUINE SULFATE
     Indication: BLAU SYNDROME
     Dosage: UNK
     Route: 065
  7. REMICADE [Suspect]
     Active Substance: INFLIXIMAB
     Indication: BLAU SYNDROME
     Dosage: UNK
     Route: 065

REACTIONS (5)
  - Uveitis [Unknown]
  - Polyarthritis [Unknown]
  - Drug ineffective [Unknown]
  - Skin lesion [Unknown]
  - Musculoskeletal stiffness [Unknown]
